FAERS Safety Report 26027852 (Version 1)
Quarter: 2025Q4

REPORT INFORMATION
  Report Type: Report from Study
  Country: US (occurrence: US)
  Receive Date: 20251111
  Receipt Date: 20251111
  Transmission Date: 20260118
  Serious: Yes (Other)
  Sender: ACADIA PHARMACEUTICALS
  Company Number: US-ACADIA PHARMACEUTICALS INC.-ACA-2025-PIM-011884

PATIENT
  Sex: Female

DRUGS (3)
  1. NUPLAZID [Suspect]
     Active Substance: PIMAVANSERIN TARTRATE
     Indication: Parkinson^s disease
     Dosage: 34 MILLIGRAM, QD
     Route: 048
     Dates: start: 20220603
  2. ATORVASTATIN [Concomitant]
     Active Substance: ATORVASTATIN
  3. GOCOVRI [Concomitant]
     Active Substance: AMANTADINE

REACTIONS (3)
  - Hallucination [Unknown]
  - Condition aggravated [Unknown]
  - Gait disturbance [Unknown]
